FAERS Safety Report 4363360-6 (Version None)
Quarter: 2004Q2

REPORT INFORMATION
  Report Type: 
  Country: None (occurrence: None)
  Receive Date: 20040524
  Receipt Date: 20020516
  Transmission Date: 20050107
  Serious: Yes (Hospitalization, Other)
  Sender: FDA-Public Use
  Company Number: US-MERCK-0205USA02119

PATIENT
  Age: 54 Year
  Sex: Male
  Weight: 100 kg

DRUGS (12)
  1. NORVASC [Concomitant]
     Route: 065
     Dates: start: 19980101, end: 20040215
  2. ASPIRIN [Concomitant]
     Route: 065
     Dates: start: 19980101, end: 20040215
  3. LIPITOR [Concomitant]
     Route: 065
     Dates: start: 19980101, end: 20040215
  4. MONOPRIL [Concomitant]
     Route: 065
     Dates: start: 19980101, end: 20040215
  5. INDOCIN [Concomitant]
     Route: 065
     Dates: start: 19980601, end: 20040215
  6. TOPROL-XL [Concomitant]
     Route: 065
     Dates: start: 19980101, end: 20000101
  7. LOPRESSOR [Concomitant]
     Route: 065
     Dates: start: 19980101, end: 20000101
  8. NAPROXEN [Concomitant]
     Route: 065
     Dates: start: 19980601, end: 20040215
  9. VIOXX [Suspect]
     Indication: GOUT
     Route: 048
     Dates: end: 19990301
  10. VIOXX [Suspect]
     Route: 048
     Dates: end: 20000301
  11. VIOXX [Suspect]
     Indication: RHEUMATOID ARTHRITIS
     Route: 048
     Dates: end: 19990301
  12. VIOXX [Suspect]
     Route: 048
     Dates: end: 20000301

REACTIONS (26)
  - ABDOMINAL PAIN [None]
  - ANXIETY DISORDER [None]
  - CHEST DISCOMFORT [None]
  - CHROMATURIA [None]
  - CORONARY ARTERY RESTENOSIS [None]
  - COUGH [None]
  - DECREASED APPETITE [None]
  - DIARRHOEA [None]
  - DRUG INEFFECTIVE [None]
  - DYSPNOEA [None]
  - FATIGUE [None]
  - FLUID RETENTION [None]
  - HYPERTENSION [None]
  - HYPOAESTHESIA [None]
  - INJURY [None]
  - INSOMNIA [None]
  - MYOCARDIAL INFARCTION [None]
  - NAUSEA [None]
  - NON-CARDIAC CHEST PAIN [None]
  - OEDEMA PERIPHERAL [None]
  - PARAESTHESIA [None]
  - PROSTATIC SPECIFIC ANTIGEN INCREASED [None]
  - RECTAL HAEMORRHAGE [None]
  - RHEUMATOID ARTHRITIS [None]
  - UMBILICAL HERNIA [None]
  - VENTRICULAR EXTRASYSTOLES [None]
